FAERS Safety Report 9403723 (Version 1)
Quarter: 2013Q3

REPORT INFORMATION
  Report Type: Spontaneous
  Country: US (occurrence: None)
  Receive Date: 20130715
  Receipt Date: 20130715
  Transmission Date: 20140515
  Serious: No
  Sender: FDA-Public Use
  Company Number: None

PATIENT
  Age: 61 Year
  Sex: Female

DRUGS (2)
  1. FLUOXETINE [Suspect]
     Indication: MAJOR DEPRESSION
     Dosage: 10 MG DAILY
  2. FLUOXETINE [Suspect]
     Dosage: 20 MG DAILY

REACTIONS (2)
  - Malaise [None]
  - Drug intolerance [None]
